FAERS Safety Report 9382001 (Version 1)
Quarter: 2013Q3

REPORT INFORMATION
  Report Type: Report from Study
  Country: AU (occurrence: AU)
  Receive Date: 20130703
  Receipt Date: 20130703
  Transmission Date: 20140515
  Serious: Yes (Other)
  Sender: FDA-Public Use
  Company Number: AU-ASTRAZENECA-2013SE24997

PATIENT
  Age: 70 Year
  Sex: Female

DRUGS (4)
  1. ARIMIDEX [Suspect]
     Route: 048
     Dates: start: 20091101
  2. LIPITOR [Concomitant]
  3. LOVAN [Concomitant]
  4. AVAPRO HCT [Concomitant]

REACTIONS (3)
  - Rash pruritic [Recovered/Resolved]
  - Skin lesion [Recovered/Resolved]
  - Scar [Recovering/Resolving]
